FAERS Safety Report 7112750-7 (Version None)
Quarter: 2010Q4

REPORT INFORMATION
  Report Type: 
  Country: None (occurrence: None)
  Receive Date: 20101119
  Receipt Date: 20101111
  Transmission Date: 20110411
  Serious: Yes (Hospitalization)
  Sender: FDA-Public Use
  Company Number: US-BRISTOL-MYERS SQUIBB COMPANY-15380280

PATIENT
  Age: 56 Year
  Sex: Male

DRUGS (4)
  1. ONGLYZA [Suspect]
     Dosage: STARTED 3 WKS AGO
     Dates: start: 20101001
  2. GLIPIZIDE [Concomitant]
  3. METFORMIN HCL [Concomitant]
  4. NOVOLOG [Concomitant]

REACTIONS (2)
  - GASTROINTESTINAL DISORDER [None]
  - PANCREATITIS ACUTE [None]
